FAERS Safety Report 25123485 (Version 1)
Quarter: 2025Q1

REPORT INFORMATION
  Report Type: Spontaneous
  Country: US (occurrence: US)
  Receive Date: 20250326
  Receipt Date: 20250326
  Transmission Date: 20250409
  Serious: Yes (Hospitalization, Other)
  Sender: GRIFOLS
  Company Number: US-IGSA-BIG0029059

PATIENT
  Age: 43 Year
  Sex: Female
  Weight: 57.143 kg

DRUGS (19)
  1. PROLASTIN-C LIQUID [Suspect]
     Active Substance: .ALPHA.1-PROTEINASE INHIBITOR HUMAN
     Indication: Alpha-1 antitrypsin deficiency
     Route: 042
     Dates: start: 20240508
  2. PROLASTIN-C LIQUID [Suspect]
     Active Substance: .ALPHA.1-PROTEINASE INHIBITOR HUMAN
     Dosage: 3294 MILLIGRAM, Q.WK.
     Route: 042
     Dates: start: 20240515
  3. PROLASTIN-C LIQUID [Suspect]
     Active Substance: .ALPHA.1-PROTEINASE INHIBITOR HUMAN
     Dosage: 3294 MILLIGRAM, Q.WK.
     Route: 042
  4. CLONAZEPAM [Concomitant]
     Active Substance: CLONAZEPAM
  5. HYDROXYZINE HYDROCHLORIDE [Concomitant]
     Active Substance: HYDROXYZINE HYDROCHLORIDE
  6. CARVEDILOL [Concomitant]
     Active Substance: CARVEDILOL
  7. BACLOFEN [Concomitant]
     Active Substance: BACLOFEN
  8. FAMOTIDINE [Concomitant]
     Active Substance: FAMOTIDINE
  9. DULOXETINE HYDROCHLORIDE [Concomitant]
     Active Substance: DULOXETINE HYDROCHLORIDE
  10. MIRTAZAPINE [Concomitant]
     Active Substance: MIRTAZAPINE
  11. VALSARTAN [Concomitant]
     Active Substance: VALSARTAN
  12. MONTELUKAST SODIUM [Concomitant]
     Active Substance: MONTELUKAST SODIUM
  13. OXCARBAZEPINE [Concomitant]
     Active Substance: OXCARBAZEPINE
  14. VITAMIN D3 [Concomitant]
     Active Substance: CHOLECALCIFEROL
  15. HEPARIN [Concomitant]
     Active Substance: HEPARIN SODIUM
  16. LIDOCAINE\PRILOCAINE HYDROCHLORIDE [Concomitant]
     Active Substance: LIDOCAINE\PRILOCAINE HYDROCHLORIDE
  17. DEXTROSE\SODIUM CHLORIDE [Concomitant]
     Active Substance: DEXTROSE\SODIUM CHLORIDE
  18. BENADRYL [Concomitant]
     Active Substance: DIPHENHYDRAMINE HYDROCHLORIDE
  19. VITAMINS [Concomitant]
     Active Substance: VITAMINS

REACTIONS (7)
  - Rash erythematous [Unknown]
  - Pruritus [Unknown]
  - Nasal discomfort [Unknown]
  - Discomfort [Unknown]
  - Hypersensitivity [Recovered/Resolved]
  - Throat tightness [Recovered/Resolved]
  - Eye pruritus [Recovered/Resolved]

NARRATIVE: CASE EVENT DATE: 20240508
